FAERS Safety Report 5748685-1 (Version None)
Quarter: 2008Q2

REPORT INFORMATION
  Report Type: 
  Country: None (occurrence: None)
  Receive Date: 20080522
  Receipt Date: 20080306
  Transmission Date: 20081010
  Serious: Yes (Hospitalization)
  Sender: FDA-Public Use
  Company Number: T05-USA-03499-01

PATIENT
  Age: 75 Year
  Sex: Female

DRUGS (21)
  1. MEMANTINE HCL [Suspect]
  2. PLACEBO [Suspect]
  3. DAPSONE [Concomitant]
  4. VITAMIN TAB [Concomitant]
  5. FOLIC ACID [Concomitant]
  6. VITAMIN E (VITAMIN E /001105/) [Concomitant]
  7. VITAMIN B12 FOR INJECTION (CYCANOCOBALAMN) [Concomitant]
  8. CLARITIN [Concomitant]
  9. CALATRATE (CALCIUM CARBONATE) [Concomitant]
  10. FLONASE (FLUTICASOE PROPIONATE) [Concomitant]
  11. ASPIRIN [Concomitant]
  12. NITROGLYCERIN [Concomitant]
  13. ACTONEL [Concomitant]
  14. ZETIA [Concomitant]
  15. DIOVAN [Concomitant]
  16. NEXIUM (ESOMPEPRAZOLE) [Concomitant]
  17. PLAVIX [Concomitant]
  18. ULTRACET [Concomitant]
  19. PROPRANOLOL [Concomitant]
  20. MIACALCIN [Concomitant]
  21. VIOXX [Concomitant]

REACTIONS (3)
  - CHOLECYSTITIS INFECTIVE [None]
  - PANCREATITIS [None]
  - SEPSIS SYNDROME [None]
